FAERS Safety Report 17071200 (Version 2)
Quarter: 2019Q4

REPORT INFORMATION
  Report Type: Spontaneous
  Country: US (occurrence: US)
  Receive Date: 20191125
  Receipt Date: 20191231
  Transmission Date: 20200122
  Serious: Yes (Other)
  Sender: FDA-Public Use
  Company Number: US-PFIZER INC-2017014540

PATIENT
  Age: 66 Year
  Sex: Female

DRUGS (15)
  1. ASPIRIN 81 [Concomitant]
     Active Substance: ASPIRIN
     Dosage: 81 MG, 1X/DAY
     Route: 048
     Dates: start: 20150806
  2. LYRICA [Suspect]
     Active Substance: PREGABALIN
     Dosage: 100 MG, 3X/DAY
     Route: 048
     Dates: start: 20161208
  3. XANAX [Concomitant]
     Active Substance: ALPRAZOLAM
     Indication: ANXIETY
     Dosage: 0.5 MG, AS NEEDED (2 TIMES DAILY )
     Route: 048
     Dates: start: 20161118
  4. OXYCODONE [Concomitant]
     Active Substance: OXYCODONE
     Dosage: 10 MG, AS NEEDED
     Route: 048
     Dates: start: 20161216, end: 20170113
  5. VITAMIN B COMPLEX WITH C [Concomitant]
     Active Substance: ASCORBIC ACID\CALCIUM PANTOTHENATE\CYANOCOBALAMIN\NIACINAMIDE\PYRIDOXINE HYDROCHLORIDE\RIBOFLAVIN\THIAMINE MONONITRATE
     Dosage: 1 DF, DAILY
     Route: 048
  6. VITAMIN D [COLECALCIFEROL] [Concomitant]
     Active Substance: CHOLECALCIFEROL
     Dosage: 1 DF, DAILY
     Route: 048
  7. SENOKOT-S [Concomitant]
     Active Substance: DOCUSATE SODIUM\SENNOSIDES
     Indication: CONSTIPATION
     Dosage: UNK UNK, 2X/DAY (8.6-50 MG PER TAB) (TAKE 2 TABS BY MOUTH 2 TIMES DAILY)
     Route: 048
     Dates: start: 20160309
  8. ALPHA LIPOIC ACID BASIC ORGANIC [Concomitant]
     Dosage: 600 MG, 1X/DAY
     Route: 048
     Dates: start: 20150806
  9. LYRICA [Suspect]
     Active Substance: PREGABALIN
     Dosage: 100 MG, 4X/DAY
     Route: 048
  10. ACAI BERRY [EUTERPE OLERACEA FRUIT] [Concomitant]
     Dosage: 1500 MG, 1X/DAY
     Route: 048
     Dates: start: 20150806
  11. VITAMIN C [ASCORBIC ACID;BIOFLAVONOIDS;HESPERIDIN;MALPIGHIA GLABRA;ROS [Concomitant]
     Dosage: 1 DF, DAILY
     Route: 048
  12. LYRICA [Suspect]
     Active Substance: PREGABALIN
     Dosage: 100 MG, 2X/DAY(TAKE 100 MG TWICE A DAY FOR 2 WEEKS THEN IF TOLERATING 3 TIMES A DAY FOR 2 WEEKS)
     Route: 048
     Dates: start: 20161123
  13. OXYCODONE [Concomitant]
     Active Substance: OXYCODONE
     Dosage: 5 MG, AS NEEDED
     Route: 048
     Dates: start: 20161216, end: 20170113
  14. LYRICA [Suspect]
     Active Substance: PREGABALIN
     Dosage: 100 MG, 1X/DAY
     Route: 048
  15. FLONASE [Concomitant]
     Active Substance: FLUTICASONE PROPIONATE
     Dosage: 200 UG, DAILY (2 SPRAYS IN EACH NOSTRIL DAILY)
     Route: 045
     Dates: start: 20161208

REACTIONS (3)
  - Back pain [Unknown]
  - Drug dependence [Unknown]
  - Migraine [Unknown]
